FAERS Safety Report 4687185-7 (Version None)
Quarter: 2005Q2

REPORT INFORMATION
  Report Type: 
  Country: None (occurrence: None)
  Receive Date: 20050606
  Receipt Date: 20050524
  Transmission Date: 20051028
  Serious: Yes (Other)
  Sender: FDA-Public Use
  Company Number: 2005079653

PATIENT
  Age: 74 Year
  Sex: Male
  Weight: 70.3075 kg

DRUGS (1)
  1. DETROL LA [Suspect]
     Indication: URINARY INCONTINENCE
     Dosage: 8 MG (4 MG, 2 IN 1 D), ORAL
     Route: 048
     Dates: start: 20050201

REACTIONS (3)
  - DRUG INEFFECTIVE [None]
  - MICTURITION URGENCY [None]
  - PROSTATIC OPERATION [None]
